FAERS Safety Report 14604234 (Version 1)
Quarter: 2018Q1

REPORT INFORMATION
  Report Type: Spontaneous
  Country: CA (occurrence: CA)
  Receive Date: 20180306
  Receipt Date: 20180306
  Transmission Date: 20180509
  Serious: Yes (Hospitalization)
  Sender: FDA-Public Use
  Company Number: CA-CELLTRION INC.-2017CA008598

PATIENT

DRUGS (10)
  1. INFLECTRA [Suspect]
     Active Substance: INFLIXIMAB-DYYB
     Indication: CROHN^S DISEASE
     Dosage: 300 MG, CYCLIC (EVERY ^^0, 2, 6, WEEKS^^, THEN EVERY 8 WEEKS)
     Route: 042
     Dates: start: 20170524, end: 20170524
  2. INFLECTRA [Suspect]
     Active Substance: INFLIXIMAB-DYYB
     Dosage: 300 MG, CYCLIC (EVERY ^^0, 2, 6, WEEKS^^, THEN EVERY 8 WEEKS)
     Route: 042
     Dates: start: 20170607, end: 20170607
  3. INFLECTRA [Suspect]
     Active Substance: INFLIXIMAB-DYYB
     Dosage: 400 MG, CYCLIC Q0,2,6 WEEKS, THEN EVERY 8 WEEKS
     Route: 042
     Dates: start: 20180216
  4. INFLECTRA [Suspect]
     Active Substance: INFLIXIMAB-DYYB
     Dosage: 400 MG, CYCLIC Q0,2,6 WEEKS, THEN EVERY 8 WEEKS
     Route: 042
     Dates: start: 20180216
  5. FLAGYL [Concomitant]
     Active Substance: METRONIDAZOLE\METRONIDAZOLE HYDROCHLORIDE
     Dosage: 500 MG, DAILY
     Route: 048
     Dates: start: 20170320
  6. PREDNISONE. [Concomitant]
     Active Substance: PREDNISONE
     Dosage: 35 MG, DAILY
     Route: 048
     Dates: start: 20170320
  7. INFLECTRA [Suspect]
     Active Substance: INFLIXIMAB-DYYB
     Dosage: 300 MG, CYCLIC (EVERY ^^0, 2, 6, WEEKS^^, THEN EVERY 8 WEEKS)
     Route: 042
     Dates: start: 20170704, end: 20170704
  8. VENLAFAXINE [Concomitant]
     Active Substance: VENLAFAXINE HYDROCHLORIDE
     Indication: DEPRESSION
     Dosage: 75 MG, DAILY
     Route: 048
  9. VITAMIN D                          /00107901/ [Concomitant]
     Active Substance: ERGOCALCIFEROL
     Dosage: 2000 IU, DAILY
     Route: 048
     Dates: start: 201612
  10. CIPROFLOXACIN. [Concomitant]
     Active Substance: CIPROFLOXACIN
     Dosage: 1000 MG, DAILY
     Route: 048
     Dates: start: 20170320

REACTIONS (15)
  - Heart rate irregular [Unknown]
  - Obstructive airways disorder [Unknown]
  - Nasopharyngitis [Unknown]
  - Dysphagia [Unknown]
  - Pharyngeal oedema [Unknown]
  - Hepatic enzyme increased [Unknown]
  - Pain [Unknown]
  - Malaise [Unknown]
  - Arthralgia [Unknown]
  - Rash [Unknown]
  - Underdose [Unknown]
  - Respiratory rate increased [Unknown]
  - Weight increased [Unknown]
  - Throat tightness [Unknown]
  - Hot flush [Unknown]

NARRATIVE: CASE EVENT DATE: 2017
